FAERS Safety Report 5015611-2 (Version None)
Quarter: 2006Q2

REPORT INFORMATION
  Report Type: 
  Country: None (occurrence: None)
  Receive Date: 20060601
  Receipt Date: 20060522
  Transmission Date: 20061013
  Serious: Yes (Death, Hospitalization)
  Sender: FDA-Public Use
  Company Number: NO-JNJFOC-20060600047

PATIENT
  Sex: Male

DRUGS (6)
  1. NOBLIGAN [Suspect]
     Indication: DRUG USE FOR UNKNOWN INDICATION
     Route: 065
  2. MAREVAN [Interacting]
     Dosage: 5-6.25MG FOR LAST HALF A YEAR
     Route: 065
  3. MAREVAN [Interacting]
     Indication: DRUG USE FOR UNKNOWN INDICATION
     Route: 065
  4. HIPREX [Concomitant]
     Route: 065
  5. PARACET [Concomitant]
     Route: 065
  6. ZOPICLONE [Concomitant]
     Route: 065

REACTIONS (2)
  - CEREBRAL HAEMORRHAGE [None]
  - DRUG INTERACTION [None]
